FAERS Safety Report 7418576-9 (Version None)
Quarter: 2011Q2

REPORT INFORMATION
  Report Type: 
  Country: None (occurrence: None)
  Receive Date: 20110415
  Receipt Date: 20110411
  Transmission Date: 20111010
  Serious: Yes (Death, Other)
  Sender: FDA-Public Use
  Company Number: PHHY2011US26412

PATIENT
  Sex: Female
  Weight: 53.061 kg

DRUGS (2)
  1. RECLAST [Suspect]
     Indication: OSTEOPENIA
     Dosage: 5 MG, YEARLY
     Route: 042
     Dates: start: 20090101
  2. RECLAST [Suspect]
     Dosage: 5 MG, UNK
     Route: 042
     Dates: start: 20101201

REACTIONS (7)
  - PULMONARY EMBOLISM [None]
  - CARDIAC ARREST [None]
  - DILATATION VENTRICULAR [None]
  - LOSS OF CONSCIOUSNESS [None]
  - DEEP VEIN THROMBOSIS [None]
  - GASTROENTERITIS [None]
  - MULTI-ORGAN FAILURE [None]
